FAERS Safety Report 7052635-8 (Version None)
Quarter: 2010Q4

REPORT INFORMATION
  Report Type: 
  Country: None (occurrence: None)
  Receive Date: 20101014
  Receipt Date: 20101001
  Transmission Date: 20110411
  Serious: Yes (Hospitalization, Other)
  Sender: FDA-Public Use
  Company Number: DSU-2010-05195

PATIENT
  Age: 59 Year
  Sex: Male
  Weight: 90.7194 kg

DRUGS (3)
  1. BENICAR [Suspect]
     Indication: HYPERTENSION
     Dosage: 40 MG (40 MG, 2 TABS QD), PER ORAL
     Route: 048
     Dates: start: 20020101
  2. ZIAC (HYDROCHLOROTHIAZIDE, BISOPROLOL) (HYDROCHLOROTHIAZIDE, BISOPROLO [Concomitant]
  3. COUMADIN [Concomitant]

REACTIONS (2)
  - BASAL CELL CARCINOMA [None]
  - SARCOIDOSIS [None]
